FAERS Safety Report 7333673-4 (Version None)
Quarter: 2011Q1

REPORT INFORMATION
  Report Type: 
  Country: None (occurrence: None)
  Receive Date: 20110306
  Receipt Date: 20110223
  Transmission Date: 20110831
  Serious: Yes (Hospitalization)
  Sender: FDA-Public Use
  Company Number: US-ELI_LILLY_AND_COMPANY-US201006007158

PATIENT
  Age: 36 Year
  Sex: Female

DRUGS (1)
  1. FORTEO [Suspect]
     Dosage: UNK, UNKNOWN
     Route: 065
     Dates: end: 20100801

REACTIONS (5)
  - FALL [None]
  - STAPHYLOCOCCAL INFECTION [None]
  - HOSPITALISATION [None]
  - PAIN [None]
  - SPINAL FRACTURE [None]
